FAERS Safety Report 20885043 (Version 1)
Quarter: 2022Q2

REPORT INFORMATION
  Report Type: Spontaneous
  Country: JP (occurrence: JP)
  Receive Date: 20220527
  Receipt Date: 20220527
  Transmission Date: 20220721
  Serious: Yes (Hospitalization, Other)
  Sender: FDA-Public Use
  Company Number: JP-MSD-M2022-16938

PATIENT
  Age: 70 Year
  Sex: Male

DRUGS (3)
  1. KEYTRUDA [Suspect]
     Active Substance: PEMBROLIZUMAB
     Indication: Squamous cell carcinoma of lung
     Dosage: 200 MILLIGRAM, Q3W
     Route: 041
     Dates: start: 20210802, end: 20210907
  2. CARBOPLATIN [Suspect]
     Active Substance: CARBOPLATIN
     Indication: Squamous cell carcinoma of lung
     Dosage: AUC6?500MG
     Route: 042
     Dates: start: 20210802, end: 20210907
  3. PACLITAXEL [Suspect]
     Active Substance: PACLITAXEL
     Indication: Squamous cell carcinoma of lung
     Dosage: 100MG/M2?150MG
     Route: 042
     Dates: start: 20210802, end: 20210907

REACTIONS (9)
  - Malignant neoplasm progression [Unknown]
  - Lumbar vertebral fracture [Unknown]
  - Stevens-Johnson syndrome [Recovering/Resolving]
  - Pneumonia bacterial [Unknown]
  - Fall [Unknown]
  - Decreased appetite [Unknown]
  - Anaemia [Unknown]
  - Pyrexia [Unknown]
  - Rash [Unknown]

NARRATIVE: CASE EVENT DATE: 20210801
